FAERS Safety Report 6884781-3 (Version None)
Quarter: 2010Q3

REPORT INFORMATION
  Report Type: 
  Country: None (occurrence: None)
  Receive Date: 20100729
  Receipt Date: 20070824
  Transmission Date: 20110219
  Serious: Yes (Hospitalization, Other)
  Sender: FDA-Public Use
  Company Number: US-PFIZER INC-2007063416

PATIENT
  Sex: Female

DRUGS (3)
  1. CELEBREX [Suspect]
     Indication: PAIN MANAGEMENT
     Dates: start: 20010205
  2. CELEBREX [Suspect]
     Indication: ARTHRITIS
  3. CELEBREX [Suspect]
     Indication: FIBROMYALGIA

REACTIONS (8)
  - BLOOD CHOLESTEROL INCREASED [None]
  - FIBROMYALGIA [None]
  - HYPERTENSION [None]
  - MYOCARDIAL INFARCTION [None]
  - PAIN [None]
  - PATELLOFEMORAL PAIN SYNDROME [None]
  - PULMONARY EMBOLISM [None]
  - TEMPOROMANDIBULAR JOINT SYNDROME [None]
